FAERS Safety Report 7051181-5 (Version None)
Quarter: 2010Q4

REPORT INFORMATION
  Report Type: 
  Country: None (occurrence: None)
  Receive Date: 20101019
  Receipt Date: 20101005
  Transmission Date: 20110411
  Serious: Yes (Hospitalization, Other)
  Sender: FDA-Public Use
  Company Number: PHHY2010JP64239

PATIENT
  Sex: Male

DRUGS (6)
  1. RASILEZ [Suspect]
     Indication: HYPERTENSION
     Dosage: 150 MG, UNK
     Route: 048
     Dates: start: 20100219, end: 20100910
  2. OLMETEC [Suspect]
     Dosage: 20 MG, UNK
     Route: 048
  3. OMEPRAZOLE [Concomitant]
     Dosage: 20 MG, UNK
     Route: 048
  4. ADALAT [Concomitant]
     Dosage: 20 MG, UNK
     Route: 048
  5. MAINTATE [Concomitant]
     Dosage: 5 MG, UNK
     Route: 048
  6. DOXAZOSIN MESYLATE [Concomitant]
     Dosage: 03 MG, UNK
     Route: 048

REACTIONS (4)
  - PLATELET AGGREGATION [None]
  - PLATELET COUNT DECREASED [None]
  - SPINAL OSTEOARTHRITIS [None]
  - SURGERY [None]
